FAERS Safety Report 4767536-5 (Version None)
Quarter: 2005Q3

REPORT INFORMATION
  Report Type: 
  Country: None (occurrence: None)
  Receive Date: 20050913
  Receipt Date: 20050907
  Transmission Date: 20060218
  Serious: Yes (Other)
  Sender: FDA-Public Use
  Company Number: US-MERCK-0509USA00825

PATIENT
  Sex: Male

DRUGS (2)
  1. VIOXX [Suspect]
     Route: 048
     Dates: start: 20040501, end: 20040801
  2. VIOXX [Suspect]
     Route: 048
     Dates: start: 20040801, end: 20040914

REACTIONS (1)
  - MYOCARDIAL INFARCTION [None]
